FAERS Safety Report 18014293 (Version 1)
Quarter: 2020Q3

REPORT INFORMATION
  Report Type: Spontaneous
  Country: DE (occurrence: DE)
  Receive Date: 20200713
  Receipt Date: 20200713
  Transmission Date: 20201103
  Serious: Yes (Other)
  Sender: FDA-Public Use
  Company Number: DE-TEVA-2020-DE-1798812

PATIENT
  Sex: Female

DRUGS (2)
  1. RISPERIDON [Suspect]
     Active Substance: RISPERIDONE
     Route: 065
  2. OLANZAPIN [Suspect]
     Active Substance: OLANZAPINE
     Route: 065

REACTIONS (13)
  - Incontinence [Unknown]
  - Social avoidant behaviour [Unknown]
  - Weight increased [Unknown]
  - Suicidal ideation [Unknown]
  - General physical condition abnormal [Unknown]
  - Hypoacusis [Unknown]
  - Skin discomfort [Unknown]
  - Visual impairment [Unknown]
  - Decreased gait velocity [Unknown]
  - Swelling face [Recovering/Resolving]
  - Bradyphrenia [Unknown]
  - Hypertrichosis [Not Recovered/Not Resolved]
  - Intentional self-injury [Unknown]
